FAERS Safety Report 9785011 (Version 2)
Quarter: 2014Q1

REPORT INFORMATION
  Report Type: Spontaneous
  Country: US (occurrence: US)
  Receive Date: 20131227
  Receipt Date: 20140102
  Transmission Date: 20141002
  Serious: Yes (Other)
  Sender: FDA-Public Use
  Company Number: US-BAXTER-2013BAX052591

PATIENT
  Sex: Male

DRUGS (4)
  1. DIANEAL LOW CALCIUM [Suspect]
     Indication: PERITONEAL DIALYSIS
     Route: 033
     Dates: end: 20131215
  2. DIANEAL LOW CALCIUM [Suspect]
     Route: 033
     Dates: start: 20131218
  3. EXTRANEAL [Suspect]
     Indication: PERITONEAL DIALYSIS
     Route: 033
     Dates: end: 20131215
  4. EXTRANEAL [Suspect]
     Route: 033
     Dates: start: 20131218

REACTIONS (1)
  - Umbilical hernia [Recovering/Resolving]
